FAERS Safety Report 4427396-9 (Version None)
Quarter: 2004Q3

REPORT INFORMATION
  Report Type: 
  Country: None (occurrence: None)
  Receive Date: 20040812
  Receipt Date: 20040729
  Transmission Date: 20050211
  Serious: Yes (Hospitalization)
  Sender: FDA-Public Use
  Company Number: 238379

PATIENT
  Sex: Female

DRUGS (1)
  1. ACTIVELLE [Suspect]
     Indication: ILL-DEFINED DISORDER

REACTIONS (1)
  - VISUAL ACUITY REDUCED [None]
